FAERS Safety Report 13564382 (Version 1)
Quarter: 2017Q2

REPORT INFORMATION
  Report Type: Report from Study
  Country: JP (occurrence: JP)
  Receive Date: 20170519
  Receipt Date: 20170519
  Transmission Date: 20170830
  Serious: Yes (Other)
  Sender: FDA-Public Use
  Company Number: JP-JNJFOC-20170300328

PATIENT
  Age: 5 Year
  Sex: Male
  Weight: 14 kg

DRUGS (8)
  1. TOPINA [Suspect]
     Active Substance: TOPIRAMATE
     Indication: PARTIAL SEIZURES
     Route: 048
     Dates: start: 20151204, end: 20151221
  2. TOPINA [Suspect]
     Active Substance: TOPIRAMATE
     Indication: PARTIAL SEIZURES
     Route: 048
     Dates: start: 20151118, end: 20151126
  3. TEGRETOL [Suspect]
     Active Substance: CARBAMAZEPINE
     Indication: PARTIAL SEIZURES
     Route: 048
     Dates: start: 20151118, end: 20151126
  4. TEGRETOL [Suspect]
     Active Substance: CARBAMAZEPINE
     Indication: PARTIAL SEIZURES
     Route: 048
     Dates: start: 20151127, end: 20151221
  5. SELENICA-R [Suspect]
     Active Substance: VALPROATE SODIUM
     Indication: PARTIAL SEIZURES
     Route: 048
     Dates: start: 20151211, end: 20151217
  6. TOPINA [Suspect]
     Active Substance: TOPIRAMATE
     Indication: PARTIAL SEIZURES
     Route: 048
     Dates: start: 20151127, end: 20151203
  7. TEGRETOL [Suspect]
     Active Substance: CARBAMAZEPINE
     Indication: PARTIAL SEIZURES
     Route: 048
     Dates: start: 20150422, end: 20151117
  8. SELENICA-R [Suspect]
     Active Substance: VALPROATE SODIUM
     Indication: PARTIAL SEIZURES
     Route: 048
     Dates: start: 20151218, end: 20151221

REACTIONS (1)
  - Status epilepticus [Not Recovered/Not Resolved]

NARRATIVE: CASE EVENT DATE: 20151221
